FAERS Safety Report 6660341-4 (Version None)
Quarter: 2010Q1

REPORT INFORMATION
  Report Type: 
  Country: None (occurrence: None)
  Receive Date: 20100331
  Receipt Date: 20100319
  Transmission Date: 20100710
  Serious: Yes (Hospitalization, Other)
  Sender: FDA-Public Use
  Company Number: CA-JNJFOC-20100306568

PATIENT
  Sex: Female
  Weight: 54.5 kg

DRUGS (2)
  1. REMICADE [Suspect]
     Indication: RHEUMATOID ARTHRITIS
     Dosage: DOSE NUMBER 27 ADMINISTERED ON 05-FEB-2010.
     Route: 042
  2. UNSPECIFIED HYPERTENSIVE MEDICATION [Concomitant]
     Indication: HYPERTENSION

REACTIONS (4)
  - ANGIOGRAM PERIPHERAL ABNORMAL [None]
  - CORONARY ARTERY OCCLUSION [None]
  - DYSPNOEA [None]
  - HYPERPARATHYROIDISM [None]
